FAERS Safety Report 9485784 (Version 1)
Quarter: 2013Q3

REPORT INFORMATION
  Report Type: Report from Study
  Country: US (occurrence: US)
  Receive Date: 20130829
  Receipt Date: 20130829
  Transmission Date: 20140515
  Serious: Yes (Death)
  Sender: FDA-Public Use
  Company Number: US-ROCHE-1265367

PATIENT
  Sex: 0

DRUGS (2)
  1. BEVACIZUMAB [Suspect]
     Indication: METASTATIC NEOPLASM
     Route: 042
  2. ENZASTAURIN [Suspect]
     Indication: METASTATIC NEOPLASM
     Route: 048

REACTIONS (1)
  - Ventricular tachycardia [Fatal]
